FAERS Safety Report 4430676-4 (Version None)
Quarter: 2004Q3

REPORT INFORMATION
  Report Type: 
  Country: None (occurrence: None)
  Receive Date: 20040721
  Receipt Date: 20040316
  Transmission Date: 20050211
  Serious: Yes (Disabling, Other)
  Sender: FDA-Public Use
  Company Number: WAES 0403USA01559

PATIENT
  Age: 72 Year
  Sex: Female

DRUGS (3)
  1. VIOXX [Suspect]
     Indication: ARTHRALGIA
     Dosage: 12.5 MG/DAILY/PO
     Route: 048
     Dates: start: 20030401, end: 20030701
  2. VIOXX [Suspect]
     Indication: ARTHRITIS
     Dosage: 12.5 MG/DAILY/PO
     Route: 048
     Dates: start: 20030401, end: 20030701
  3. DYAZIDE [Concomitant]

REACTIONS (1)
  - RENAL FAILURE [None]
